FAERS Safety Report 6451615-0 (Version None)
Quarter: 2009Q4

REPORT INFORMATION
  Report Type: 
  Country: None (occurrence: None)
  Receive Date: 20091118
  Receipt Date: 20090707
  Transmission Date: 20100525
  Serious: Yes (Hospitalization)
  Sender: FDA-Public Use
  Company Number: 2008BI000870

PATIENT
  Age: 46 Year
  Sex: Female

DRUGS (3)
  1. TYSABRI [Suspect]
     Indication: MULTIPLE SCLEROSIS
     Dosage: 63 ML;     ;IV
     Route: 042
     Dates: start: 20080108, end: 20080108
  2. AVONEX [Concomitant]
  3. COPAXONE [Concomitant]

REACTIONS (1)
  - HYPERSENSITIVITY [None]
